FAERS Safety Report 6064733-6 (Version None)
Quarter: 2009Q1

REPORT INFORMATION
  Report Type: 
  Country: None (occurrence: None)
  Receive Date: 20090204
  Receipt Date: 20081006
  Transmission Date: 20090719
  Serious: Yes (Life-Threatening, Hospitalization)
  Sender: FDA-Public Use
  Company Number: A0745402A

PATIENT
  Age: 68 Year
  Sex: Male
  Weight: 185 kg

DRUGS (2)
  1. ARIXTRA [Suspect]
     Route: 058
     Dates: start: 20080601, end: 20080101
  2. NERVE BLOCK [Concomitant]

REACTIONS (3)
  - DRUG INEFFECTIVE [None]
  - DYSPNOEA [None]
  - PULMONARY EMBOLISM [None]
